FAERS Safety Report 6160485-X (Version None)
Quarter: 2009Q2

REPORT INFORMATION
  Report Type: 
  Country: None (occurrence: None)
  Receive Date: 20090420
  Receipt Date: 20090414
  Transmission Date: 20091009
  Serious: Yes (Other)
  Sender: FDA-Public Use
  Company Number: BR-BAYER-200816428LA

PATIENT
  Age: 52 Year
  Sex: Male
  Weight: 74 kg

DRUGS (6)
  1. ASPIRIN [Suspect]
     Indication: THROMBOSIS PROPHYLAXIS
     Dosage: AS USED: 100 MG
     Route: 048
     Dates: start: 20041001, end: 20081201
  2. ZETIA [Concomitant]
     Indication: DYSLIPIDAEMIA
     Route: 048
     Dates: start: 20071101
  3. CRESTOR [Concomitant]
     Indication: DYSLIPIDAEMIA
     Route: 048
  4. ATENOLOL [Concomitant]
     Indication: CARDIAC DISORDER
     Route: 048
     Dates: start: 20041001
  5. PANTOCOL [Concomitant]
     Indication: GASTRIC DISORDER
     Dates: start: 20040101
  6. OLCADIL [Concomitant]
     Indication: ANXIETY
     Route: 048

REACTIONS (8)
  - ANAL HAEMORRHAGE [None]
  - DIZZINESS [None]
  - EPISTAXIS [None]
  - EYE PRURITUS [None]
  - HYPERSENSITIVITY [None]
  - PRURITUS [None]
  - RHINITIS [None]
  - VASCULAR GRAFT OCCLUSION [None]
